FAERS Safety Report 19957440 (Version 2)
Quarter: 2021Q4

REPORT INFORMATION
  Report Type: Spontaneous
  Country: IT (occurrence: IT)
  Receive Date: 20211014
  Receipt Date: 20211022
  Transmission Date: 20220303
  Serious: Yes (Other)
  Sender: FDA-Public Use
  Company Number: IT-TEVA-2021-IT-1963733

PATIENT
  Age: 56 Year

DRUGS (5)
  1. DOXORUBICIN [Suspect]
     Active Substance: DOXORUBICIN
     Indication: Diffuse large B-cell lymphoma
     Dosage: 6 CYCLES, IN EVERY 21 DAYS
     Route: 065
     Dates: start: 201808, end: 201901
  2. VINCRISTINE [Suspect]
     Active Substance: VINCRISTINE
     Indication: Diffuse large B-cell lymphoma
     Dosage: 6 CYCLES, IN EVERY 21 DAYS
     Route: 065
     Dates: start: 201808, end: 201901
  3. PREDNISONE [Suspect]
     Active Substance: PREDNISONE
     Indication: Diffuse large B-cell lymphoma
     Dosage: 6 CYCLES, IN EVERY 21 DAYS
     Route: 065
     Dates: start: 201808, end: 201901
  4. CYCLOPHOSPHAMIDE [Suspect]
     Active Substance: CYCLOPHOSPHAMIDE
     Indication: Diffuse large B-cell lymphoma
     Dosage: 6 CYCLES, IN EVERY 21 DAYS
     Route: 065
     Dates: start: 201808, end: 201901
  5. RITUXIMAB [Suspect]
     Active Substance: RITUXIMAB
     Indication: Diffuse large B-cell lymphoma
     Dosage: 8 DOSAGES, IN EVERY 21 DAYS
     Route: 042
     Dates: start: 201808, end: 201901

REACTIONS (1)
  - Neutropenia [Unknown]
